FAERS Safety Report 9246241 (Version 1)
Quarter: 2013Q2

REPORT INFORMATION
  Report Type: Spontaneous
  Country: US (occurrence: US)
  Receive Date: 20130422
  Receipt Date: 20130422
  Transmission Date: 20140414
  Serious: Yes (Hospitalization)
  Sender: FDA-Public Use
  Company Number: US-MYLANLABS-2013S1006197

PATIENT
  Age: 85 Year
  Sex: Female
  Weight: 69.85 kg

DRUGS (3)
  1. AMIODARONE HYDROCHLORIDE INJECTION [Suspect]
     Route: 042
     Dates: start: 20130207, end: 20130207
  2. AMIODARONE HYDROCHLORIDE INJECTION [Suspect]
     Route: 042
     Dates: start: 20130207, end: 20130208
  3. DILTIAZEM HCL INJECTION [Suspect]
     Indication: ATRIAL FIBRILLATION

REACTIONS (1)
  - Infusion site extravasation [Not Recovered/Not Resolved]
